FAERS Safety Report 19971009 (Version 1)
Quarter: 2021Q4

REPORT INFORMATION
  Report Type: Report from Study
  Country: CN (occurrence: CN)
  Receive Date: 20211019
  Receipt Date: 20211019
  Transmission Date: 20220303
  Serious: Yes (Life-Threatening, Hospitalization, Other)
  Sender: FDA-Public Use
  Company Number: CN-FERRINGPH-2021FE06605

PATIENT
  Age: 79 Year
  Sex: Male

DRUGS (2)
  1. DEGARELIX [Suspect]
     Active Substance: DEGARELIX
     Indication: Prostate cancer
     Dosage: 240 MG, ONCE/SINGLE
     Route: 058
     Dates: start: 20200130
  2. DEGARELIX [Suspect]
     Active Substance: DEGARELIX
     Dosage: 80 MG, MONTHLY (Q4W EVERY 4TH WEEK)
     Route: 058
     Dates: start: 202002, end: 202109

REACTIONS (5)
  - Shock [Recovered/Resolved]
  - Pyrexia [Recovering/Resolving]
  - Pyrexia [Recovering/Resolving]
  - Pyrexia [Recovering/Resolving]
  - Pyrexia [Recovering/Resolving]

NARRATIVE: CASE EVENT DATE: 20201001
